FAERS Safety Report 9247276 (Version 3)
Quarter: 2014Q1

REPORT INFORMATION
  Report Type: Spontaneous
  Country: FR (occurrence: FR)
  Receive Date: 20130423
  Receipt Date: 20140214
  Transmission Date: 20141002
  Serious: Yes (Other)
  Sender: FDA-Public Use
  Company Number: FR-AMGEN-FRASP2013027896

PATIENT
  Age: 57 Year
  Sex: Female
  Weight: 82 kg

DRUGS (3)
  1. FILGRASTIM [Suspect]
     Indication: PRODUCT USED FOR UNKNOWN INDICATION
     Dosage: UNK
     Route: 065
     Dates: start: 20120321
  2. TRASTUZUMAB EMTANSINE [Suspect]
     Indication: BREAST CANCER
     Dosage: 288 MG, 1 IN 3 WK
     Route: 042
     Dates: start: 20120321
  3. DOCETAXEL [Suspect]
     Indication: BREAST CANCER
     Dosage: 13880 MG, 1 IN 3 WK
     Route: 042
     Dates: start: 20120521

REACTIONS (1)
  - Skin hyperpigmentation [Recovered/Resolved]
